FAERS Safety Report 14545017 (Version 1)
Quarter: 2018Q1

REPORT INFORMATION
  Report Type: Spontaneous
  Country: US (occurrence: US)
  Receive Date: 20180216
  Receipt Date: 20180216
  Transmission Date: 20180509
  Serious: Yes (Disabling)
  Sender: FDA-Public Use
  Company Number: None

PATIENT
  Sex: Female
  Weight: 74.84 kg

DRUGS (1)
  1. MIRENA [Suspect]
     Active Substance: LEVONORGESTREL
     Dates: start: 20120119

REACTIONS (8)
  - Gait disturbance [None]
  - Groin pain [None]
  - Pollakiuria [None]
  - Back pain [None]
  - Headache [None]
  - Micturition urgency [None]
  - Blindness [None]
  - Tinnitus [None]

NARRATIVE: CASE EVENT DATE: 20171003
